FAERS Safety Report 18232738 (Version 1)
Quarter: 2020Q3

REPORT INFORMATION
  Report Type: Spontaneous
  Country: US (occurrence: US)
  Receive Date: 20200904
  Receipt Date: 20200904
  Transmission Date: 20201103
  Serious: No
  Sender: FDA-Public Use
  Company Number: None

PATIENT
  Age: 74 Year
  Sex: Male

DRUGS (2)
  1. PRASUGREL (PRASUGREL HCL 10 MG TAB) [Suspect]
     Active Substance: PRASUGREL HYDROCHLORIDE
     Indication: VASCULAR OPERATION
     Route: 048
     Dates: start: 20200207, end: 20200312
  2. APIXABAN (APIXABAN 5MG TAB) [Suspect]
     Active Substance: APIXABAN
     Indication: ATRIAL FIBRILLATION
     Route: 048
     Dates: start: 20191111, end: 20200312

REACTIONS (2)
  - Fall [None]
  - Subarachnoid haematoma [None]

NARRATIVE: CASE EVENT DATE: 20200312
